FAERS Safety Report 7079787-8 (Version None)
Quarter: 2010Q4

REPORT INFORMATION
  Report Type: 
  Country: None (occurrence: None)
  Receive Date: 20101102
  Receipt Date: 20101021
  Transmission Date: 20110411
  Serious: Yes (Hospitalization, Other)
  Sender: FDA-Public Use
  Company Number: DE-PFIZER INC-2010138609

PATIENT
  Age: 59 Year
  Sex: Male

DRUGS (8)
  1. ATENOLOL [Suspect]
  2. AMLODIPINE BESYLATE [Suspect]
  3. ONGLYZA [Suspect]
     Indication: DIABETES MELLITUS
     Dosage: 1 DF, DAILY
     Dates: start: 20100726
  4. METFORMIN HCL [Suspect]
     Indication: DIABETES MELLITUS
     Dosage: 1 DF, 2X/DAY
     Dates: start: 20070101
  5. SIMVASTATIN [Suspect]
     Dosage: 30 MG, DAILY
     Dates: start: 20080101
  6. GODAMED [Suspect]
  7. TORASEMIDE [Suspect]
  8. ENALAPRIL [Suspect]

REACTIONS (6)
  - ASCITES [None]
  - BLOOD ALBUMIN DECREASED [None]
  - BLOOD BILIRUBIN INCREASED [None]
  - GAMMA-GLUTAMYLTRANSFERASE INCREASED [None]
  - LEUKOCYTOSIS [None]
  - TRANSAMINASES INCREASED [None]
